FAERS Safety Report 4282969-1 (Version None)
Quarter: 2004Q1

REPORT INFORMATION
  Report Type: 
  Country: None (occurrence: None)
  Receive Date: 20040130
  Receipt Date: 20031128
  Transmission Date: 20041129
  Serious: Yes (Other)
  Sender: FDA-Public Use
  Company Number: NO-BRISTOL-MYERS SQUIBB COMPANY-12464889

PATIENT
  Age: 50 Year
  Sex: Male

DRUGS (3)
  1. EFAVIRENZ [Suspect]
     Indication: HIV INFECTION
     Route: 048
     Dates: start: 20000101
  2. EPIVIR [Concomitant]
     Dates: start: 20010101
  3. ZIAGEN [Concomitant]
     Dates: start: 20000101

REACTIONS (3)
  - CHEST PAIN [None]
  - CHOLELITHIASIS [None]
  - HYPERCHOLESTEROLAEMIA [None]
